FAERS Safety Report 5297880-7 (Version None)
Quarter: 2007Q2

REPORT INFORMATION
  Report Type: 
  Country: None (occurrence: None)
  Receive Date: 20070416
  Receipt Date: 20070411
  Transmission Date: 20071010
  Serious: Yes (Death)
  Sender: FDA-Public Use
  Company Number: IE-AVENTIS-200622916GDDC

PATIENT
  Age: 54 Year
  Sex: Male

DRUGS (5)
  1. LANTUS [Suspect]
     Route: 058
     Dates: start: 20050525
  2. DIAMICRON [Concomitant]
     Route: 048
     Dates: start: 20051028
  3. ISTIN [Concomitant]
     Route: 048
     Dates: start: 20040101
  4. ASPIRIN [Concomitant]
     Route: 048
     Dates: start: 20040101
  5. ATORVASTATIN CALCIUM [Concomitant]
     Route: 048
     Dates: start: 20051130

REACTIONS (3)
  - DEATH [None]
  - HEAD INJURY [None]
  - LOSS OF CONSCIOUSNESS [None]
